FAERS Safety Report 8158643-8 (Version None)
Quarter: 2012Q1

REPORT INFORMATION
  Report Type: 
  Country: None (occurrence: None)
  Receive Date: 20120223
  Receipt Date: 20120215
  Transmission Date: 20120608
  Serious: Yes (Hospitalization)
  Sender: FDA-Public Use
  Company Number: US-UCBSA-051707

PATIENT
  Age: 26 Year
  Sex: Female
  Weight: 56.69 kg

DRUGS (11)
  1. PREDNISONE [Concomitant]
     Indication: CROHN'S DISEASE
     Route: 048
     Dates: start: 20120110
  2. ASACOL [Concomitant]
     Indication: COLITIS
     Dosage: 400 MG , 4 TABLETS TWICE A DAY
     Route: 048
  3. XANAX [Concomitant]
     Indication: ANXIETY
     Route: 048
     Dates: start: 20120207
  4. PRILOSEC OTC [Concomitant]
     Indication: DYSPEPSIA
     Dosage: 20.6 DELAYED RELEASE
     Route: 048
     Dates: start: 20120207
  5. CIMZIA [Suspect]
     Indication: CROHN'S DISEASE
     Dosage: PREFILLED SYRINGE
     Route: 058
     Dates: start: 20110201
  6. OTC-GAS X [Concomitant]
     Indication: FLATULENCE
     Dosage: 125 MG CHEWABLE TAB PROBABLY FROM PAST 1 YEAR
     Route: 048
  7. OTC-MOTRIN [Concomitant]
     Indication: BACK PAIN
     Dosage: 200 MG FOR MENSTRUAL CRAMPS AND BACK PAIN FROM PAST 10 YEARS
     Route: 048
  8. OTC-MOTRIN [Concomitant]
     Indication: DYSMENORRHOEA
     Dosage: 200 MG FOR MENSTRUAL CRAMPS AND BACK PAIN FROM PAST 10 YEARS
     Route: 048
  9. PROMETHAZINE [Concomitant]
     Indication: NAUSEA
     Dosage: AS NEEDED
     Route: 048
     Dates: start: 20110201
  10. PERCOCET [Concomitant]
     Indication: PAIN
     Dosage: 10/325 MG EVERY 4-6 HOURS(TAKES AT LEAST 3 TABLETS A DAY)
     Route: 048
     Dates: start: 20120207
  11. IMODIUM [Concomitant]
     Indication: DIARRHOEA
     Dosage: 2 MG AS NECESSARY EVERY 6 HOURS THROUGHOUT THE DAY FROM PAST 20 YEARS
     Route: 048

REACTIONS (8)
  - FEMALE GENITAL TRACT FISTULA [None]
  - SCAR [None]
  - CROHN'S DISEASE [None]
  - FISTULA [None]
  - DRUG ERUPTION [None]
  - OEDEMA PERIPHERAL [None]
  - WEIGHT INCREASED [None]
  - SUBCUTANEOUS ABSCESS [None]
